FAERS Safety Report 19608836 (Version 1)
Quarter: 2021Q3

REPORT INFORMATION
  Report Type: Spontaneous
  Country: US (occurrence: US)
  Receive Date: 20210721
  Receipt Date: 20210721
  Transmission Date: 20211014
  Serious: No
  Sender: FDA-Public Use
  Company Number: None

PATIENT

DRUGS (2)
  1. CARBOPLATIN. [Suspect]
     Active Substance: CARBOPLATIN
  2. FLUOROURACIL. [Suspect]
     Active Substance: FLUOROURACIL
     Dosage: ?          OTHER STRENGTH:5/100 G/ML;?
     Route: 042

REACTIONS (3)
  - Wrong drug [None]
  - Circumstance or information capable of leading to medication error [None]
  - Product appearance confusion [None]
